APPROVED DRUG PRODUCT: DEXMEDETOMIDINE HYDROCHLORIDE
Active Ingredient: DEXMEDETOMIDINE HYDROCHLORIDE
Strength: EQ 80MCG BASE/20ML (EQ 4MCG BASE/ML)
Dosage Form/Route: INJECTABLE;INJECTION
Application: A212791 | Product #003
Applicant: WILSHIRE PHARMACEUTICALS INC
Approved: May 8, 2020 | RLD: No | RS: No | Type: DISCN